FAERS Safety Report 13921216 (Version 2)
Quarter: 2017Q4

REPORT INFORMATION
  Report Type: Report from Study
  Country: BR (occurrence: BR)
  Receive Date: 20170830
  Receipt Date: 20171204
  Transmission Date: 20180320
  Serious: Yes (Hospitalization)
  Sender: FDA-Public Use
  Company Number: BR-UCBSA-2017033635

PATIENT
  Age: 68 Year
  Sex: Female

DRUGS (2)
  1. LEVETIRACETAM. [Suspect]
     Active Substance: LEVETIRACETAM
     Indication: EPILEPSY
     Dosage: 750 MG, 2X/DAY (BID)
     Route: 048
     Dates: start: 201704, end: 2017
  2. LEVETIRACETAM. [Suspect]
     Active Substance: LEVETIRACETAM
     Dosage: 1 TABLET 750MG IN THE MORNING AND 1 TABLET 250MG IN THE EVENING, 1 TABLET 750MG NIGHT, 3X/DAY (TID)
     Route: 048
     Dates: start: 201708

REACTIONS (3)
  - Off label use [Unknown]
  - Seizure [Unknown]
  - Alopecia [Recovered/Resolved]

NARRATIVE: CASE EVENT DATE: 201704
